FAERS Safety Report 8272150-3 (Version None)
Quarter: 2012Q2

REPORT INFORMATION
  Report Type: 
  Country: None (occurrence: None)
  Receive Date: 20120410
  Receipt Date: 20120319
  Transmission Date: 20120825
  Serious: No
  Sender: FDA-Public Use
  Company Number: US-ASTRAZENECA-2012SE08523

PATIENT
  Age: 70 Year
  Sex: Male

DRUGS (5)
  1. LISINOPRIL [Concomitant]
  2. OXYCONTIN [Concomitant]
  3. DIPHENOXYLATE HCL + ATROPINE SULFATE [Concomitant]
  4. HYDROCODONE BITARTRATE AND ACETAMINOPHEN [Concomitant]
  5. VANDETANIB [Suspect]
     Indication: THYROID CANCER
     Route: 048

REACTIONS (3)
  - PARAESTHESIA [None]
  - NAUSEA [None]
  - RASH [None]
